FAERS Safety Report 4389870-3 (Version None)
Quarter: 2004Q2

REPORT INFORMATION
  Report Type: 
  Country: None (occurrence: None)
  Receive Date: 20040630
  Receipt Date: 20040617
  Transmission Date: 20050107
  Serious: Yes (Hospitalization)
  Sender: FDA-Public Use
  Company Number: 2004035164

PATIENT
  Age: 77 Year
  Sex: Male

DRUGS (5)
  1. NIFEDIPINE [Suspect]
     Indication: ATRIAL FIBRILLATION
     Dosage: ORAL
     Route: 048
  2. NIFEDIPINE [Suspect]
     Indication: HYPERTENSION
     Dosage: ORAL
     Route: 048
  3. ACETYLSALICYLIC ACID SRT [Suspect]
     Indication: ATRIAL FIBRILLATION
     Dosage: ORAL
     Route: 048
  4. ACETYLSALICYLIC ACID SRT [Suspect]
     Indication: HYPERTENSION
     Dosage: ORAL
     Route: 048
  5. DIGOXIN [Concomitant]

REACTIONS (15)
  - ABDOMINAL SYMPTOM [None]
  - ADVERSE DRUG REACTION [None]
  - BEZOAR [None]
  - CONSTIPATION [None]
  - CONTRAINDICATION TO MEDICAL TREATMENT [None]
  - FAECES DISCOLOURED [None]
  - GASTRIC MUCOSAL LESION [None]
  - GASTROINTESTINAL HAEMORRHAGE [None]
  - HAEMATEMESIS [None]
  - HAEMATOCRIT DECREASED [None]
  - HAEMOGLOBIN DECREASED [None]
  - MELAENA [None]
  - MUCOSAL DISCOLOURATION [None]
  - NAUSEA [None]
  - POST PROCEDURAL COMPLICATION [None]
